FAERS Safety Report 6737255-4 (Version None)
Quarter: 2010Q2

REPORT INFORMATION
  Report Type: 
  Country: None (occurrence: None)
  Receive Date: 20100524
  Receipt Date: 20100514
  Transmission Date: 20101027
  Serious: No
  Sender: FDA-Public Use
  Company Number: US-BIOGENIDEC-2010BI016606

PATIENT
  Age: 49 Year
  Sex: Female

DRUGS (2)
  1. TYSABRI [Suspect]
     Indication: MULTIPLE SCLEROSIS
     Route: 042
     Dates: start: 20080825
  2. VITAMIN B-12 [Concomitant]
     Indication: ANAEMIA

REACTIONS (5)
  - CHILLS [None]
  - MUSCULAR WEAKNESS [None]
  - PYREXIA [None]
  - RENAL PAIN [None]
  - URINARY TRACT INFECTION [None]
